FAERS Safety Report 4842517-1 (Version None)
Quarter: 2005Q4

REPORT INFORMATION
  Report Type: 
  Country: None (occurrence: None)
  Receive Date: 20051129
  Receipt Date: 20051118
  Transmission Date: 20060501
  Serious: Yes (Other)
  Sender: FDA-Public Use
  Company Number: CIP05002619

PATIENT
  Age: 37 Year
  Sex: Male

DRUGS (1)
  1. ASACOL [Suspect]
     Indication: COLITIS ULCERATIVE
     Dosage: 800 MG THREE TIMES DAILY, ORAL
     Route: 048
     Dates: start: 20040101

REACTIONS (3)
  - CONDITION AGGRAVATED [None]
  - INFLAMMATORY BOWEL DISEASE [None]
  - RENAL FAILURE CHRONIC [None]
